FAERS Safety Report 11903938 (Version 2)
Quarter: 2016Q1

REPORT INFORMATION
  Report Type: Spontaneous
  Country: US (occurrence: US)
  Receive Date: 20160111
  Receipt Date: 20160224
  Transmission Date: 20160526
  Serious: Yes (Death)
  Sender: FDA-Public Use
  Company Number: US-GALENA BIOPHARMA-1046317

PATIENT
  Age: 24 Year
  Sex: Female

DRUGS (1)
  1. ABSTRAL [Suspect]
     Active Substance: FENTANYL CITRATE
     Indication: OFF LABEL USE
     Route: 060

REACTIONS (3)
  - Off label use [None]
  - Death [Fatal]
  - Drug ineffective for unapproved indication [None]
